FAERS Safety Report 7739159-7 (Version None)
Quarter: 2011Q3

REPORT INFORMATION
  Report Type: 
  Country: None (occurrence: None)
  Receive Date: 20110909
  Receipt Date: 20110830
  Transmission Date: 20111222
  Serious: Yes (Hospitalization)
  Sender: FDA-Public Use
  Company Number: US-BIOGENIDEC-2011BI023293

PATIENT
  Age: 46 Year
  Sex: Female

DRUGS (4)
  1. AVONEX [Suspect]
     Indication: MULTIPLE SCLEROSIS
     Route: 030
     Dates: start: 20010727, end: 20071231
  2. TYSABRI [Concomitant]
     Route: 042
     Dates: start: 20070701, end: 20100101
  3. TYSABRI [Concomitant]
     Indication: MULTIPLE SCLEROSIS
     Route: 042
     Dates: start: 20041201, end: 20050101
  4. TYSABRI [Concomitant]
     Route: 042
     Dates: start: 20060701, end: 20060701

REACTIONS (1)
  - STAPHYLOCOCCAL INFECTION [None]
